FAERS Safety Report 7962472-5 (Version None)
Quarter: 2011Q4

REPORT INFORMATION
  Report Type: 
  Country: None (occurrence: None)
  Receive Date: 20111207
  Receipt Date: 20111130
  Transmission Date: 20120403
  Serious: Yes (Hospitalization)
  Sender: FDA-Public Use
  Company Number: US-GLAXOSMITHKLINE-A0880816A

PATIENT
  Sex: Female

DRUGS (1)
  1. AVANDAMET [Suspect]
     Indication: DIABETES MELLITUS
     Dates: start: 20060101, end: 20070101

REACTIONS (4)
  - THROMBOSIS [None]
  - VIITH NERVE PARALYSIS [None]
  - CENTRAL NERVOUS SYSTEM LESION [None]
  - HEADACHE [None]
